FAERS Safety Report 5512242-2 (Version None)
Quarter: 2007Q4

REPORT INFORMATION
  Report Type: 
  Country: None (occurrence: None)
  Receive Date: 20071108
  Receipt Date: 20071108
  Transmission Date: 20080405
  Serious: No
  Sender: FDA-Public Use
  Company Number: None

PATIENT
  Age: 73 Year
  Sex: Female

DRUGS (12)
  1. AMLODIPINE [Suspect]
     Indication: HYPERTENSION
     Dosage: 5 MG BID PO
     Route: 048
     Dates: start: 20070701
  2. LANTUS [Concomitant]
  3. PRILOSEC [Concomitant]
  4. PRANDIN [Concomitant]
  5. ATACAND [Concomitant]
  6. CLONIDINE [Concomitant]
  7. HYDROCHLOROTHIAZIDE [Concomitant]
  8. TOPROL-XL [Concomitant]
  9. TIKOSYN [Concomitant]
  10. LASIX [Concomitant]
  11. FLONASE [Concomitant]
  12. SYNTHROID [Concomitant]

REACTIONS (2)
  - DRUG INTOLERANCE [None]
  - PHARMACEUTICAL PRODUCT COMPLAINT [None]
